FAERS Safety Report 15966332 (Version 1)
Quarter: 2019Q1

REPORT INFORMATION
  Report Type: Spontaneous
  Country: US (occurrence: US)
  Receive Date: 20190214
  Receipt Date: 20190214
  Transmission Date: 20190418
  Serious: Yes (Disabling)
  Sender: FDA-Public Use
  Company Number: None

PATIENT
  Age: 37 Year
  Sex: Male
  Weight: 63 kg

DRUGS (7)
  1. VITAMIN D [Concomitant]
     Active Substance: CHOLECALCIFEROL
  2. CLOMIPHRENE CITRATE [Concomitant]
  3. GABA [Concomitant]
     Active Substance: HOMEOPATHICS
  4. PROPECIA [Suspect]
     Active Substance: FINASTERIDE
     Indication: ANDROGENETIC ALOPECIA
     Dosage: ?          QUANTITY:1 TABLET(S);?
     Route: 048
  5. VITAMIN B [Concomitant]
     Active Substance: VITAMIN B
  6. SAME [Concomitant]
  7. MAGNESIUM [Concomitant]
     Active Substance: MAGNESIUM

REACTIONS (7)
  - Suicidal ideation [None]
  - Loss of libido [None]
  - Genital disorder male [None]
  - Threat of redundancy [None]
  - Disturbance in attention [None]
  - Loss of personal independence in daily activities [None]
  - Product complaint [None]

NARRATIVE: CASE EVENT DATE: 20180201
